FAERS Safety Report 9722244 (Version 1)
Quarter: 2013Q4

REPORT INFORMATION
  Report Type: Spontaneous
  Country: US (occurrence: US)
  Receive Date: 20131202
  Receipt Date: 20131202
  Transmission Date: 20140711
  Serious: No
  Sender: FDA-Public Use
  Company Number: US-JNJFOC-20131112721

PATIENT
  Age: 55 Year
  Sex: Female
  Weight: 60.78 kg

DRUGS (3)
  1. SANDOZ FENTANYL TRANSDERMAL SYSTEM [Suspect]
     Indication: COMPRESSION FRACTURE
     Route: 062
     Dates: start: 2011
  2. SANDOZ FENTANYL TRANSDERMAL SYSTEM [Suspect]
     Indication: FIBROMYALGIA
     Route: 062
     Dates: start: 2011
  3. SANDOZ FENTANYL TRANSDERMAL SYSTEM [Suspect]
     Indication: BONE DISORDER
     Route: 062
     Dates: start: 2011

REACTIONS (6)
  - Product quality issue [Unknown]
  - Wrong technique in drug usage process [Not Recovered/Not Resolved]
  - Wrong technique in drug usage process [Not Recovered/Not Resolved]
  - Poor quality drug administered [Not Recovered/Not Resolved]
  - Product quality issue [Unknown]
  - Product adhesion issue [Unknown]
